FAERS Safety Report 11770809 (Version 1)
Quarter: 2015Q4

REPORT INFORMATION
  Report Type: Report from Study
  Country: US (occurrence: US)
  Receive Date: 20151123
  Receipt Date: 20151123
  Transmission Date: 20160304
  Serious: Yes (Hospitalization, Other)
  Sender: FDA-Public Use
  Company Number: US-AMGEN-USASL2015123163

PATIENT
  Age: 61 Year
  Sex: Female

DRUGS (1)
  1. ENBREL [Suspect]
     Active Substance: ETANERCEPT
     Indication: RHEUMATOID ARTHRITIS
     Dosage: 50 MG, QWK
     Route: 065
     Dates: start: 2009

REACTIONS (10)
  - Arthralgia [Unknown]
  - Pneumonia [Unknown]
  - Pain [Unknown]
  - Coagulopathy [Unknown]
  - Pulmonary embolism [Unknown]
  - Staphylococcal abscess [Unknown]
  - Staphylococcal osteomyelitis [Unknown]
  - Malaise [Unknown]
  - Inflammation [Unknown]
  - Sjogren^s syndrome [Unknown]

NARRATIVE: CASE EVENT DATE: 201507
